FAERS Safety Report 7773461-8 (Version None)
Quarter: 2011Q3

REPORT INFORMATION
  Report Type: 
  Country: None (occurrence: None)
  Receive Date: 20110922
  Receipt Date: 20110915
  Transmission Date: 20111222
  Serious: Yes (Hospitalization)
  Sender: FDA-Public Use
  Company Number: US-MERCK-1109USA01738

PATIENT
  Sex: Female

DRUGS (10)
  1. HALDOL [Concomitant]
     Route: 030
  2. HALDOL [Concomitant]
     Route: 065
  3. CELEXA [Concomitant]
     Route: 065
  4. ISENTRESS [Suspect]
     Indication: HIV INFECTION
     Route: 048
  5. INVEGA [Concomitant]
     Route: 065
  6. SYNTHROID [Concomitant]
     Route: 065
  7. TRUVADA [Concomitant]
     Route: 065
  8. PROVENTIL-HFA [Concomitant]
     Route: 065
  9. NEUROTIN (ACETYLCARNITINE HYDROCHLORIDE) [Concomitant]
     Route: 065
  10. COGENTIN [Concomitant]
     Route: 065

REACTIONS (1)
  - SCHIZOPHRENIA [None]
